FAERS Safety Report 6653523-9 (Version None)
Quarter: 2010Q1

REPORT INFORMATION
  Report Type: 
  Country: None (occurrence: None)
  Receive Date: 20100326
  Receipt Date: 20100317
  Transmission Date: 20100710
  Serious: Yes (Death)
  Sender: FDA-Public Use
  Company Number: FR-GENZYME-FABR-1001265

PATIENT

DRUGS (15)
  1. FABRAZYME [Suspect]
     Indication: FABRY'S DISEASE
     Dosage: UNK
     Dates: start: 19990101, end: 20100208
  2. RENAGEL [Concomitant]
     Indication: DRUG USE FOR UNKNOWN INDICATION
     Dosage: UNK UNK, TID
     Dates: start: 20080908, end: 20100208
  3. NOZINAN [Concomitant]
     Indication: DRUG USE FOR UNKNOWN INDICATION
     Dosage: 5 GTT, QD
     Dates: start: 20090722, end: 20100208
  4. KAYEXALATE [Concomitant]
     Indication: DRUG USE FOR UNKNOWN INDICATION
     Dosage: UNK UNK, 5X/W
     Dates: start: 20090713, end: 20100208
  5. NEXIUM [Concomitant]
     Indication: DRUG USE FOR UNKNOWN INDICATION
     Dosage: 20 MG, QD
     Dates: start: 20080310, end: 20100208
  6. DEPAKENE [Concomitant]
     Indication: DRUG USE FOR UNKNOWN INDICATION
     Dosage: 500 MG, BID
     Dates: start: 20090206, end: 20100208
  7. ANAFRANIL [Concomitant]
     Indication: DRUG USE FOR UNKNOWN INDICATION
     Dosage: 25 MG, QD
     Dates: start: 20080314, end: 20100208
  8. VALIUM [Concomitant]
     Indication: DRUG USE FOR UNKNOWN INDICATION
     Dosage: UNK UNK, 2X/W
     Route: 042
     Dates: start: 20090411, end: 20100208
  9. LOVENOX [Concomitant]
     Indication: DRUG USE FOR UNKNOWN INDICATION
     Dosage: 4000 UNK, 2X/W
     Dates: start: 20080915, end: 20100208
  10. MULTI-VIT [Concomitant]
     Indication: DRUG USE FOR UNKNOWN INDICATION
     Dosage: UNK UNK, 2X/W
     Dates: start: 20080310, end: 20081003
  11. KABIVEN [Concomitant]
     Indication: DRUG USE FOR UNKNOWN INDICATION
     Dosage: 800 ML, 2X/W
     Route: 051
     Dates: start: 20080310, end: 20100208
  12. NEORECORMON [Concomitant]
     Indication: DRUG USE FOR UNKNOWN INDICATION
     Dosage: 6000 IU, 2X/W
     Route: 065
     Dates: start: 20090724, end: 20100208
  13. LEVOCARNIL [Concomitant]
     Indication: DRUG USE FOR UNKNOWN INDICATION
     Dosage: 1 UNK, 2X/W
     Route: 042
     Dates: start: 20080310, end: 20100208
  14. NOCTRAN 10 [Concomitant]
     Indication: DRUG USE FOR UNKNOWN INDICATION
     Dosage: 10 MG, QD
     Route: 065
     Dates: start: 20080310, end: 20100208
  15. HAEMODIALYTICS AND HAEMOFILTRATES [Concomitant]
     Indication: RENAL FAILURE CHRONIC

REACTIONS (1)
  - ADVERSE EVENT [None]
